FAERS Safety Report 7826464-9 (Version None)
Quarter: 2011Q4

REPORT INFORMATION
  Report Type: 
  Country: None (occurrence: None)
  Receive Date: 20111020
  Receipt Date: 20111012
  Transmission Date: 20120403
  Serious: Yes (Other)
  Sender: FDA-Public Use
  Company Number: US-VERTEX PHARMACEUTICALS INC.-AE-2011-002258

PATIENT
  Sex: Female
  Weight: 63.56 kg

DRUGS (6)
  1. PEGASYS [Concomitant]
     Indication: HEPATITIS C
     Dates: start: 20110810
  2. BENADRYL [Concomitant]
  3. HYDROXYZINE [Concomitant]
  4. INCIVEK [Suspect]
     Indication: HEPATITIS C
     Dates: start: 20110810
  5. RIBAVIRIN [Concomitant]
     Indication: HEPATITIS C
     Dates: start: 20110810
  6. TYLENOL-500 [Concomitant]

REACTIONS (3)
  - HYPOAESTHESIA ORAL [None]
  - LOSS OF CONSCIOUSNESS [None]
  - HYPOAESTHESIA [None]
